FAERS Safety Report 21119627 (Version 2)
Quarter: 2022Q3

REPORT INFORMATION
  Report Type: Spontaneous
  Country: US (occurrence: US)
  Receive Date: 20220722
  Receipt Date: 20220920
  Transmission Date: 20221026
  Serious: Yes (Other)
  Sender: FDA-Public Use
  Company Number: US-NOVARTISTESTPH-NVSC2022US166323

PATIENT
  Sex: Female

DRUGS (7)
  1. RECLAST [Suspect]
     Active Substance: ZOLEDRONIC ACID
     Indication: Osteoporosis
     Dosage: UNK
     Route: 065
  2. RECLAST [Suspect]
     Active Substance: ZOLEDRONIC ACID
     Dosage: 1 DOSAGE FORM (1 DOSE)
     Route: 065
     Dates: start: 20220411
  3. NEXIUM [Concomitant]
     Active Substance: ESOMEPRAZOLE MAGNESIUM
     Indication: Product used for unknown indication
     Dosage: UNK
     Route: 065
  4. SYNTHROID [Concomitant]
     Active Substance: LEVOTHYROXINE SODIUM
     Indication: Product used for unknown indication
     Dosage: UNK
     Route: 065
  5. ESTRADIOL [Concomitant]
     Active Substance: ESTRADIOL
     Indication: Product used for unknown indication
     Dosage: UNK
     Route: 065
  6. LAMICTAL [Concomitant]
     Active Substance: LAMOTRIGINE
     Indication: Product used for unknown indication
     Dosage: UNK
     Route: 065
  7. CALCIUM\MAGNESIUM [Concomitant]
     Active Substance: CALCIUM\MAGNESIUM
     Indication: Product used for unknown indication
     Dosage: UNK
     Route: 065

REACTIONS (13)
  - Anaphylactic reaction [Unknown]
  - Rash [Unknown]
  - Ill-defined disorder [Unknown]
  - Tendon pain [Unknown]
  - Dysstasia [Unknown]
  - Gait disturbance [Unknown]
  - Peripheral swelling [Not Recovered/Not Resolved]
  - Joint swelling [Recovering/Resolving]
  - Bone pain [Not Recovered/Not Resolved]
  - Arthralgia [Unknown]
  - Abdominal pain upper [Unknown]
  - Pain in extremity [Unknown]
  - Asthenia [Not Recovered/Not Resolved]
